FAERS Safety Report 8894557 (Version 1)
Quarter: 2012Q4

REPORT INFORMATION
  Report Type: 
  Country: CA (occurrence: CA)
  Receive Date: 20121108
  Receipt Date: 20121108
  Transmission Date: 20130627
  Serious: Yes (Hospitalization, Other)
  Sender: FDA-Public Use
  Company Number: US-AMGEN-CANSP2012067124

PATIENT
  Age: 87 Year
  Sex: Female

DRUGS (7)
  1. PROLIA [Suspect]
     Indication: OSTEOPOROSIS POSTMENOPAUSAL
     Dosage: UNK
     Dates: start: 20110504
  2. METFORMIN [Concomitant]
     Indication: DIABETES MELLITUS
  3. VASOTEC [Concomitant]
  4. NORVASC [Concomitant]
  5. CELEMAX [Concomitant]
     Dosage: UNK UNK, prn
  6. DILTIAZEM [Concomitant]
  7. PANTOLOC [Concomitant]

REACTIONS (3)
  - Myocardial infarction [Unknown]
  - Intestinal operation [Unknown]
  - Hospitalisation [Not Recovered/Not Resolved]
